FAERS Safety Report 20808029 (Version 1)
Quarter: 2022Q2

REPORT INFORMATION
  Report Type: Spontaneous
  Country: ES (occurrence: ES)
  Receive Date: 20220510
  Receipt Date: 20220510
  Transmission Date: 20220720
  Serious: Yes (Hospitalization, Other)
  Sender: FDA-Public Use
  Company Number: ES-GRUNENTHAL-2022-101700

PATIENT
  Age: 75 Year
  Sex: Male

DRUGS (3)
  1. PREGABALIN [Interacting]
     Active Substance: PREGABALIN
     Indication: Neuralgia
     Dosage: UNK
     Route: 065
     Dates: start: 2011, end: 20220209
  2. SERTRALINE [Interacting]
     Active Substance: SERTRALINE HYDROCHLORIDE
     Indication: Neuralgia
     Dosage: UNK
     Route: 065
     Dates: end: 202202
  3. TAPENTADOL [Interacting]
     Active Substance: TAPENTADOL
     Indication: Neuralgia
     Dosage: 100 MILLIGRAM DAILY;
     Route: 065
     Dates: start: 2011, end: 20220209

REACTIONS (8)
  - Musculoskeletal stiffness [Not Recovered/Not Resolved]
  - Serotonin syndrome [Not Recovered/Not Resolved]
  - Loss of consciousness [Not Recovered/Not Resolved]
  - Pain [Not Recovered/Not Resolved]
  - Withdrawal syndrome [Not Recovered/Not Resolved]
  - Tremor [Not Recovered/Not Resolved]
  - Clonus [Unknown]
  - Drug interaction [Unknown]

NARRATIVE: CASE EVENT DATE: 20220209
